FAERS Safety Report 5840839-9 (Version None)
Quarter: 2008Q3

REPORT INFORMATION
  Report Type: 
  Country: None (occurrence: None)
  Receive Date: 20080811
  Receipt Date: 20080807
  Transmission Date: 20090109
  Serious: Yes (Hospitalization)
  Sender: FDA-Public Use
  Company Number: JP-BOEHRINGER INGELHEIM GMBH, GERMANY-2008-BP-09008NB

PATIENT
  Sex: Female
  Weight: 33 kg

DRUGS (6)
  1. MICARDIS [Suspect]
     Indication: HYPERTENSION
     Route: 048
     Dates: end: 20080602
  2. ASPIRIN [Suspect]
     Indication: ANGINA UNSTABLE
     Route: 048
     Dates: end: 20080602
  3. MAGMITT [Concomitant]
     Indication: CONSTIPATION
     Route: 048
     Dates: end: 20080602
  4. LANSOPRAZOLE [Concomitant]
     Indication: REFLUX OESOPHAGITIS
     Route: 048
     Dates: end: 20080602
  5. SINGULAIR [Concomitant]
     Indication: ASTHMA
     Route: 048
     Dates: start: 20080101
  6. JUZEN-TAIHO-TO [Concomitant]
     Indication: WEIGHT DECREASED
     Route: 048
     Dates: start: 20080415, end: 20080422

REACTIONS (1)
  - PNEUMONIA [None]
